FAERS Safety Report 21206688 (Version 14)
Quarter: 2025Q4

REPORT INFORMATION
  Report Type: Spontaneous
  Country: JP (occurrence: JP)
  Receive Date: 20220812
  Receipt Date: 20251223
  Transmission Date: 20260117
  Serious: Yes (Death, Life-Threatening, Hospitalization, Other)
  Sender: ASTELLAS
  Company Number: JP-ASTELLAS-2022JP011862

PATIENT
  Age: 66 Year
  Sex: Male
  Weight: 67 kg

DRUGS (29)
  1. PADCEV [Suspect]
     Active Substance: ENFORTUMAB VEDOTIN-EJFV
     Indication: Transitional cell cancer of the renal pelvis and ureter
     Dosage: 86 MG
     Route: 042
     Dates: start: 20220712, end: 20220726
  2. LANSOPRAZOLE [Suspect]
     Active Substance: LANSOPRAZOLE
     Indication: Abdominal pain upper
     Route: 048
     Dates: start: 20220714, end: 20220721
  3. LANSOPRAZOLE [Suspect]
     Active Substance: LANSOPRAZOLE
     Indication: Product used for unknown indication
     Route: 042
     Dates: start: 20220809, end: 20220814
  4. DIPHENHYDRAMINE [Concomitant]
     Active Substance: DIPHENHYDRAMINE
     Indication: Pruritus
     Route: 061
     Dates: start: 20220726
  5. GLYCOSAMINOGLYCANS [Concomitant]
     Active Substance: GLYCOSAMINOGLYCANS
     Indication: Pruritus
     Route: 061
     Dates: start: 20220726
  6. ALESION [Concomitant]
     Active Substance: EPINASTINE HYDROCHLORIDE
     Indication: Pruritus
     Route: 048
     Dates: start: 20220726
  7. LEVOFLOXACIN [Concomitant]
     Active Substance: LEVOFLOXACIN
     Indication: Product used for unknown indication
     Route: 048
     Dates: start: 20220801
  8. PREDONINE [Concomitant]
     Active Substance: PREDNISOLONE
     Indication: Erythema
     Route: 065
     Dates: start: 20220803
  9. PREDONINE [Concomitant]
     Active Substance: PREDNISOLONE
     Indication: Dermatitis bullous
     Dosage: 1 MG/KG/DAY
     Route: 042
     Dates: start: 20220805, end: 20220819
  10. PREDONINE [Concomitant]
     Active Substance: PREDNISOLONE
     Indication: Toxic epidermal necrolysis
     Route: 065
     Dates: start: 20220820
  11. VONOPRAZAN FUMARATE [Concomitant]
     Active Substance: VONOPRAZAN FUMARATE
     Indication: Product used for unknown indication
     Route: 065
     Dates: start: 20220803
  12. TOPSYM [Concomitant]
     Indication: Dermatitis bullous
     Route: 061
     Dates: start: 20220803
  13. PROSTANDIN [Concomitant]
     Indication: Skin erosion
     Route: 061
     Dates: start: 20220807
  14. MICONAZOLE [Concomitant]
     Active Substance: MICONAZOLE
     Indication: Oral candidiasis
     Route: 061
     Dates: start: 20220808
  15. CEFAZOLIN [Concomitant]
     Active Substance: CEFAZOLIN
     Indication: Product used for unknown indication
     Route: 065
     Dates: start: 20220810, end: 20220816
  16. GASTER [Concomitant]
     Active Substance: FAMOTIDINE
     Indication: Product used for unknown indication
     Route: 042
     Dates: start: 20220814
  17. POLARAMINE [Concomitant]
     Active Substance: DEXCHLORPHENIRAMINE MALEATE
     Indication: Product used for unknown indication
     Route: 065
     Dates: start: 20220814
  18. ALLEGRA [Concomitant]
     Active Substance: FEXOFENADINE HYDROCHLORIDE
     Indication: Product used for unknown indication
     Route: 048
     Dates: start: 20220816
  19. ALLELOCK [Concomitant]
     Active Substance: OLOPATADINE HYDROCHLORIDE
     Indication: Product used for unknown indication
     Route: 048
     Dates: start: 20220816
  20. METHYLPREDNISOLONE [Concomitant]
     Active Substance: METHYLPREDNISOLONE
     Indication: Dermatitis bullous
     Route: 065
     Dates: start: 20220817, end: 20220819
  21. METHYLPREDNISOLONE [Concomitant]
     Active Substance: METHYLPREDNISOLONE
     Indication: Toxic epidermal necrolysis
  22. HEPARIN [Concomitant]
     Active Substance: HEPARIN SODIUM
     Indication: Deep vein thrombosis
     Dosage: 10000 U
     Route: 042
     Dates: start: 20220818
  23. AMPICILLIN SODIUM\SULBACTAM SODIUM [Concomitant]
     Active Substance: AMPICILLIN SODIUM\SULBACTAM SODIUM
     Indication: Product used for unknown indication
     Route: 065
     Dates: start: 20220818, end: 20220819
  24. VANCOMYCIN [Concomitant]
     Active Substance: VANCOMYCIN
     Indication: Product used for unknown indication
     Route: 065
     Dates: start: 20220819, end: 20220824
  25. MEROPENEM [Concomitant]
     Active Substance: MEROPENEM
     Indication: Product used for unknown indication
     Route: 065
     Dates: start: 20220819, end: 20220824
  26. IMMUNE GLOBULIN [Concomitant]
     Indication: Dermatitis bullous
     Dosage: 28000 MG
     Route: 042
     Dates: start: 20220823, end: 20220827
  27. IMMUNE GLOBULIN [Concomitant]
     Indication: Toxic epidermal necrolysis
  28. ATOVAQUONE [Concomitant]
     Active Substance: ATOVAQUONE
     Indication: Product used for unknown indication
     Route: 048
     Dates: start: 20220824
  29. HUMAN RED BLOOD CELL [Concomitant]
     Active Substance: HUMAN RED BLOOD CELL
     Indication: Neutrophil count decreased
     Dosage: 2 U
     Route: 065

REACTIONS (14)
  - Toxic epidermal necrolysis [Fatal]
  - Septic shock [Fatal]
  - Neutrophil count decreased [Unknown]
  - Blood pressure decreased [Unknown]
  - Pyrexia [Not Recovered/Not Resolved]
  - Dermatitis bullous [Not Recovered/Not Resolved]
  - Myelosuppression [Recovered/Resolved]
  - Hyperglycaemia [Not Recovered/Not Resolved]
  - Decreased appetite [Not Recovered/Not Resolved]
  - Erythema [Recovered/Resolved]
  - Oral candidiasis [Unknown]
  - Hyponatraemia [Unknown]
  - Hepatic function abnormal [Unknown]
  - Arthralgia [Not Recovered/Not Resolved]

NARRATIVE: CASE EVENT DATE: 20220723
